FAERS Safety Report 11941426 (Version 1)
Quarter: 2016Q1

REPORT INFORMATION
  Report Type: Spontaneous
  Country: GB (occurrence: GB)
  Receive Date: 20160122
  Receipt Date: 20160122
  Transmission Date: 20160526
  Serious: Yes (Other)
  Sender: FDA-Public Use
  Company Number: GB-BIOGEN-2016BI00175188

PATIENT
  Sex: Female

DRUGS (2)
  1. TECFIDERA [Suspect]
     Active Substance: DIMETHYL FUMARATE
     Indication: MULTIPLE SCLEROSIS
     Route: 065
     Dates: end: 201512
  2. TECFIDERA [Suspect]
     Active Substance: DIMETHYL FUMARATE
     Route: 065
     Dates: start: 20160112

REACTIONS (11)
  - Nausea [Unknown]
  - Food interaction [Unknown]
  - Adverse reaction [Unknown]
  - Feeling hot [Unknown]
  - Malaise [Unknown]
  - Seizure [Unknown]
  - Flushing [Unknown]
  - Insomnia [Unknown]
  - Decreased appetite [Unknown]
  - Neurological symptom [Unknown]
  - Hot flush [Unknown]
